FAERS Safety Report 5945293-4 (Version None)
Quarter: 2008Q4

REPORT INFORMATION
  Report Type: 
  Country: None (occurrence: None)
  Receive Date: 20081107
  Receipt Date: 20081020
  Transmission Date: 20090506
  Serious: Yes (Hospitalization)
  Sender: FDA-Public Use
  Company Number: IT-ROCHE-577902

PATIENT
  Age: 22 Year
  Sex: Male

DRUGS (1)
  1. ROACCUTAN [Suspect]
     Route: 065

REACTIONS (1)
  - ENTERITIS [None]
